FAERS Safety Report 6700396-1 (Version None)
Quarter: 2010Q2

REPORT INFORMATION
  Report Type: 
  Country: None (occurrence: None)
  Receive Date: 20100428
  Receipt Date: 20100419
  Transmission Date: 20101027
  Serious: Yes (Other)
  Sender: FDA-Public Use
  Company Number: US-ROCHE-698431

PATIENT
  Age: 43 Year
  Sex: Male

DRUGS (10)
  1. ALL-TRANS-RETINOIC ACID [Suspect]
     Dosage: INDUCTION CHEMOTHERAPY
     Route: 065
  2. ALL-TRANS-RETINOIC ACID [Suspect]
     Dosage: CONSOLIDATION THERAPY
     Route: 065
  3. ALL-TRANS-RETINOIC ACID [Suspect]
     Dosage: MAINTENANCE THERAPY
     Route: 065
  4. ALL-TRANS-RETINOIC ACID [Suspect]
     Dosage: ON DAY 1-14 OF 28 DAY CYCLE
     Route: 065
  5. GEMTUZUMAB OZOGAMICIN [Suspect]
     Indication: ACUTE PROMYELOCYTIC LEUKAEMIA
     Dosage: ON DAY 1
     Route: 065
  6. DAUNORUBICIN HCL [Concomitant]
     Dosage: INDUCTION CHEMOTHERAPY
  7. DAUNORUBICIN HCL [Concomitant]
     Dosage: CONSOLIDATION THERAPY
  8. CYTARABINE [Concomitant]
  9. MERCAPTOPURINE [Concomitant]
  10. METHOTREXATE [Concomitant]

REACTIONS (2)
  - ACUTE PROMYELOCYTIC LEUKAEMIA [None]
  - THROMBOCYTOPENIA [None]
